FAERS Safety Report 4449027-4 (Version None)
Quarter: 2004Q3

REPORT INFORMATION
  Report Type: 
  Country: None (occurrence: None)
  Receive Date: 20040909
  Receipt Date: 20040827
  Transmission Date: 20050211
  Serious: Yes (Death, Other)
  Sender: FDA-Public Use
  Company Number: 2004059901

PATIENT
  Age: 48 Year
  Sex: Female

DRUGS (4)
  1. NEURONTIN [Suspect]
     Indication: ARTHRALGIA
  2. NEURONTIN [Suspect]
     Indication: DEPRESSION
  3. NEURONTIN [Suspect]
     Indication: FATIGUE
  4. NEURONTIN [Suspect]
     Indication: MOVEMENT DISORDER

REACTIONS (4)
  - ANXIETY [None]
  - COMPLETED SUICIDE [None]
  - PAIN [None]
  - SUICIDAL IDEATION [None]
